FAERS Safety Report 4852324-1 (Version None)
Quarter: 2005Q4

REPORT INFORMATION
  Report Type: 
  Country: None (occurrence: None)
  Receive Date: 20051209
  Receipt Date: 20050502
  Transmission Date: 20060501
  Serious: Yes (Death)
  Sender: FDA-Public Use
  Company Number: 2005SP000509

PATIENT
  Age: 65 Year
  Sex: Female
  Weight: 40.8237 kg

DRUGS (1)
  1. XOPENEX [Suspect]
     Indication: ASTHMA
     Dosage: 1.25 MG/3ML;BID; INHALATION
     Route: 055
     Dates: start: 20030101

REACTIONS (4)
  - CATARACT [None]
  - MUSCLE SPASMS [None]
  - RHINORRHOEA [None]
  - VISION BLURRED [None]
